FAERS Safety Report 10271060 (Version 2)
Quarter: 2014Q3

REPORT INFORMATION
  Report Type: Spontaneous
  Country: IT (occurrence: IT)
  Receive Date: 20140701
  Receipt Date: 20140701
  Transmission Date: 20150326
  Serious: Yes (Death, Hospitalization)
  Sender: FDA-Public Use
  Company Number: IT-BRISTOL-MYERS SQUIBB COMPANY-20590923

PATIENT
  Age: 93 Year
  Sex: Female

DRUGS (5)
  1. KLACID [Interacting]
     Active Substance: CLARITHROMYCIN
     Indication: PNEUMONIA
     Route: 048
     Dates: start: 20140310, end: 20140311
  2. DEURSIL [Concomitant]
     Active Substance: URSODIOL
     Dosage: CAPS
     Route: 050
     Dates: end: 20140311
  3. ANTRA [Interacting]
     Active Substance: OMEPRAZOLE
     Indication: PROPHYLAXIS AGAINST GASTROINTESTINAL ULCER
     Route: 048
     Dates: start: 20130916, end: 20140311
  4. LASIX [Concomitant]
     Active Substance: FUROSEMIDE
     Dosage: TABS
     Route: 048
     Dates: end: 20140311
  5. COUMADIN [Suspect]
     Active Substance: WARFARIN SODIUM
     Indication: PULMONARY EMBOLISM
     Route: 048
     Dates: start: 20130916, end: 20140311

REACTIONS (3)
  - Pneumothorax [Fatal]
  - Drug interaction [Recovered/Resolved]
  - International normalised ratio increased [Recovered/Resolved]
